FAERS Safety Report 18141394 (Version 1)
Quarter: 2020Q3

REPORT INFORMATION
  Report Type: Spontaneous
  Country: US (occurrence: US)
  Receive Date: 20200812
  Receipt Date: 20200812
  Transmission Date: 20201103
  Serious: Yes (Death, Other)
  Sender: FDA-Public Use
  Company Number: US-PURDUE-USA-2020-0160685

PATIENT
  Age: 25 Year
  Sex: Male

DRUGS (16)
  1. OXYCONTIN [Suspect]
     Active Substance: OXYCODONE HYDROCHLORIDE
     Indication: SURGERY
  2. DILAUDID [Suspect]
     Active Substance: HYDROMORPHONE HYDROCHLORIDE
     Indication: PAIN
     Dosage: UNK
     Route: 048
  3. OXYCODONE HYDROCHLORIDE (SIMILAR TO NDA 22?272) [Suspect]
     Active Substance: OXYCODONE HYDROCHLORIDE
     Indication: PAIN
     Route: 048
  4. METHADONE [Suspect]
     Active Substance: METHADONE HYDROCHLORIDE
     Indication: SURGERY
  5. SERTRALINE [Suspect]
     Active Substance: SERTRALINE HYDROCHLORIDE
     Indication: PRODUCT USED FOR UNKNOWN INDICATION
     Route: 065
  6. ATOMOXETINE. [Suspect]
     Active Substance: ATOMOXETINE HYDROCHLORIDE
     Indication: PRODUCT USED FOR UNKNOWN INDICATION
     Route: 065
  7. DILAUDID [Suspect]
     Active Substance: HYDROMORPHONE HYDROCHLORIDE
     Indication: SURGERY
  8. OXYCODONE/ ACETAMINOPHEN TABLETS [Suspect]
     Active Substance: ACETAMINOPHEN\OXYCODONE HYDROCHLORIDE
     Indication: PRODUCT USED FOR UNKNOWN INDICATION
     Route: 048
  9. TRAMADOLE [Suspect]
     Active Substance: TRAMADOL HYDROCHLORIDE
     Indication: PRODUCT USED FOR UNKNOWN INDICATION
     Route: 048
  10. OXYCODONE HCL TABLETS (RHODES 91?490) [Suspect]
     Active Substance: OXYCODONE HYDROCHLORIDE
     Indication: PRODUCT USED FOR UNKNOWN INDICATION
     Route: 048
  11. GABAPENTIN. [Suspect]
     Active Substance: GABAPENTIN
     Indication: PRODUCT USED FOR UNKNOWN INDICATION
     Route: 065
  12. OXYCONTIN [Suspect]
     Active Substance: OXYCODONE HYDROCHLORIDE
     Indication: PAIN
     Dosage: UNK
     Route: 048
  13. MORPHINE SULFATE EXTENDED?RELEASE TABLETS (RHODES 74?769, 74?862) [Suspect]
     Active Substance: MORPHINE SULFATE
     Indication: PAIN
     Route: 048
  14. METHADONE [Suspect]
     Active Substance: METHADONE HYDROCHLORIDE
     Indication: PAIN
     Route: 065
  15. HYDROCODONE BITARTRATE AND ACETAMINOPHEN [Suspect]
     Active Substance: ACETAMINOPHEN\HYDROCODONE BITARTRATE
     Indication: PRODUCT USED FOR UNKNOWN INDICATION
     Route: 048
  16. OXYCODONE HYDROCHLORIDE (SIMILAR TO NDA 22?272) [Suspect]
     Active Substance: OXYCODONE HYDROCHLORIDE
     Indication: SURGERY

REACTIONS (10)
  - Toxicity to various agents [Fatal]
  - Drug dependence [Unknown]
  - Paranasal sinus neoplasm [Unknown]
  - Back pain [Unknown]
  - Pulmonary congestion [Unknown]
  - Bipolar disorder [Unknown]
  - Depression [Unknown]
  - Arteriosclerosis coronary artery [Unknown]
  - Pulmonary oedema [Unknown]
  - Completed suicide [Fatal]

NARRATIVE: CASE EVENT DATE: 20090503
